FAERS Safety Report 8498785-0 (Version None)
Quarter: 2012Q3

REPORT INFORMATION
  Report Type: 
  Country: None (occurrence: None)
  Receive Date: 20120709
  Receipt Date: 20120702
  Transmission Date: 20120928
  Serious: Yes (Disabling, Other)
  Sender: FDA-Public Use
  Company Number: US-TEVA-346722USA

PATIENT
  Sex: Female

DRUGS (3)
  1. DARVON [Suspect]
  2. PROPOXYPHENE HYDROCHLORIDE [Suspect]
  3. PROPOXYPHENE NAPSYLATE W/ ACETAMINOPHEN [Suspect]

REACTIONS (2)
  - ATRIOVENTRICULAR BLOCK COMPLETE [None]
  - ARRHYTHMIA [None]
